FAERS Safety Report 4959132-1 (Version None)
Quarter: 2006Q1

REPORT INFORMATION
  Report Type: 
  Country: None (occurrence: None)
  Receive Date: 20060330
  Receipt Date: 20060330
  Transmission Date: 20060701
  Serious: No
  Sender: FDA-Public Use
  Company Number: None

PATIENT
  Age: 62 Year
  Sex: Male
  Weight: 104.3273 kg

DRUGS (1)
  1. ZOCOR [Suspect]
     Indication: BLOOD CHOLESTEROL INCREASED
     Dosage: 20 MG TWICE A DAY
     Dates: start: 19951202, end: 20060207

REACTIONS (4)
  - MUSCLE SPASMS [None]
  - MYALGIA [None]
  - NEUROPATHY [None]
  - PAIN [None]
